FAERS Safety Report 15012332 (Version 1)
Quarter: 2018Q2

REPORT INFORMATION
  Report Type: Spontaneous
  Country: AR (occurrence: AR)
  Receive Date: 20180614
  Receipt Date: 20180614
  Transmission Date: 20180711
  Serious: Yes (Other)
  Sender: FDA-Public Use
  Company Number: AR-PFIZER INC-2018239093

PATIENT
  Age: 65 Year
  Sex: Male

DRUGS (1)
  1. IBUPIRAC [Suspect]
     Active Substance: IBUPROFEN
     Indication: INFLAMMATION
     Dosage: 400 MG, DAILY

REACTIONS (1)
  - Deafness [Unknown]
